FAERS Safety Report 5532351-1 (Version None)
Quarter: 2007Q4

REPORT INFORMATION
  Report Type: 
  Country: None (occurrence: None)
  Receive Date: 20071203
  Receipt Date: 20071119
  Transmission Date: 20080405
  Serious: Yes (Other)
  Sender: FDA-Public Use
  Company Number: US-AMGEN-US253560

PATIENT
  Sex: Female

DRUGS (7)
  1. PROCRIT [Suspect]
     Indication: SYSTEMIC LUPUS ERYTHEMATOSUS
     Dates: start: 20000101, end: 20000101
  2. PROPRANOLOL [Concomitant]
     Dates: start: 19750101
  3. SYNTHROID [Concomitant]
  4. PAXIL [Concomitant]
  5. VICODIN [Concomitant]
  6. SOMA [Concomitant]
  7. IRON [Concomitant]

REACTIONS (4)
  - BRONCHITIS [None]
  - DYSPNOEA [None]
  - FATIGUE [None]
  - HAEMOGLOBIN DECREASED [None]
